FAERS Safety Report 22209821 (Version 1)
Quarter: 2023Q2

REPORT INFORMATION
  Report Type: Spontaneous
  Country: FR (occurrence: FR)
  Receive Date: 20230414
  Receipt Date: 20230414
  Transmission Date: 20230721
  Serious: Yes (Hospitalization)
  Sender: FDA-Public Use
  Company Number: FR-AFSSAPS-LL2023000457

PATIENT
  Age: 36 Year
  Sex: Female
  Weight: 103 kg

DRUGS (1)
  1. CEFPODOXIME [Suspect]
     Active Substance: CEFPODOXIME
     Indication: Self-medication
     Dosage: UNK
     Route: 048
     Dates: start: 20230312, end: 20230315

REACTIONS (2)
  - Rash pustular [Recovering/Resolving]
  - Rash [Recovering/Resolving]

NARRATIVE: CASE EVENT DATE: 20230312
